FAERS Safety Report 7334597-9 (Version None)
Quarter: 2011Q1

REPORT INFORMATION
  Report Type: 
  Country: None (occurrence: None)
  Receive Date: 20110307
  Receipt Date: 20110209
  Transmission Date: 20110831
  Serious: No
  Sender: FDA-Public Use
  Company Number: A0902851A

PATIENT
  Age: 47 Year
  Sex: Male
  Weight: 90.9 kg

DRUGS (7)
  1. FLEXERIL [Concomitant]
  2. REQUIP [Suspect]
     Indication: RESTLESS LEGS SYNDROME
     Route: 048
  3. ADDERALL 10 [Concomitant]
  4. HYDROCHLOROTHIAZIDE [Concomitant]
  5. AMBIEN [Concomitant]
  6. ATENOLOL [Concomitant]
  7. LISINOPRIL [Concomitant]

REACTIONS (1)
  - DRUG SCREEN FALSE POSITIVE [None]
